FAERS Safety Report 10376026 (Version 2)
Quarter: 2014Q3

REPORT INFORMATION
  Report Type: Spontaneous
  Country: US (occurrence: None)
  Receive Date: 20140801
  Receipt Date: 20140912
  Transmission Date: 20150326
  Serious: Yes (Other)
  Sender: FDA-Public Use
  Company Number: ADR-2013-02254

PATIENT
  Age: 26 Year
  Sex: Male

DRUGS (2)
  1. BACLOFEN INTRATHECAL [Suspect]
     Active Substance: BACLOFEN
     Indication: MUSCLE SPASTICITY
  2. BACLOFEN ORAL [Suspect]
     Active Substance: BACLOFEN

REACTIONS (14)
  - Hyperhidrosis [None]
  - Tremor [None]
  - Drug ineffective [None]
  - Asthenia [None]
  - Somnolence [None]
  - Red blood cell count increased [None]
  - Gastrooesophageal reflux disease [None]
  - Device failure [None]
  - Eating disorder [None]
  - Pruritus [None]
  - Peripheral coldness [None]
  - Fatigue [None]
  - Nausea [None]
  - Gastric pH decreased [None]
